FAERS Safety Report 5984483-1 (Version None)
Quarter: 2008Q4

REPORT INFORMATION
  Report Type: 
  Country: None (occurrence: None)
  Receive Date: 20081208
  Receipt Date: 20071109
  Transmission Date: 20090506
  Serious: No
  Sender: FDA-Public Use
  Company Number: US-AMGEN-KDL252034

PATIENT
  Sex: Female

DRUGS (5)
  1. ENBREL [Suspect]
     Indication: RHEUMATOID ARTHRITIS
     Route: 058
     Dates: start: 20071022
  2. ENBREL [Suspect]
     Indication: DRUG USE FOR UNKNOWN INDICATION
  3. SULFASALAZINE [Concomitant]
     Route: 048
     Dates: start: 20070101
  4. PLAQUENIL [Concomitant]
     Route: 048
     Dates: start: 20070101
  5. METHOTREXATE [Concomitant]
     Route: 048

REACTIONS (1)
  - INJECTION SITE ERYTHEMA [None]
